FAERS Safety Report 9308410 (Version 3)
Quarter: 2013Q2

REPORT INFORMATION
  Report Type: Spontaneous
  Country: SE (occurrence: SE)
  Receive Date: 20130524
  Receipt Date: 20130618
  Transmission Date: 20140414
  Serious: Yes (Hospitalization)
  Sender: FDA-Public Use
  Company Number: SE-ROCHE-1228154

PATIENT
  Age: 68 Year
  Sex: Male

DRUGS (3)
  1. MABTHERA [Suspect]
     Indication: RHEUMATOID ARTHRITIS
     Route: 042
     Dates: start: 20120510, end: 20130129
  2. PREDNISOLON [Concomitant]
  3. ARAVA [Concomitant]
     Route: 065

REACTIONS (1)
  - Atrioventricular block [Recovered/Resolved]
